FAERS Safety Report 15451348 (Version 1)
Quarter: 2018Q4

REPORT INFORMATION
  Report Type: Spontaneous
  Country: JP (occurrence: JP)
  Receive Date: 20181001
  Receipt Date: 20181001
  Transmission Date: 20190204
  Serious: Yes (Other)
  Sender: FDA-Public Use
  Company Number: JP-BAYER-2018-181826

PATIENT
  Age: 58 Year
  Sex: Male

DRUGS (1)
  1. STIVARGA [Suspect]
     Active Substance: REGORAFENIB
     Indication: HEPATOCELLULAR CARCINOMA
     Dosage: 120 MG, QD
     Route: 048
     Dates: start: 20170825, end: 20171125

REACTIONS (6)
  - Hepatocellular carcinoma [Not Recovered/Not Resolved]
  - Pleural effusion [Recovering/Resolving]
  - Hypoalbuminaemia [Recovering/Resolving]
  - Palmar-plantar erythrodysaesthesia syndrome [Recovered/Resolved]
  - Protein urine present [Recovered/Resolved]
  - Oedema peripheral [Recovering/Resolving]

NARRATIVE: CASE EVENT DATE: 20170925
